FAERS Safety Report 10010869 (Version 1)
Quarter: 2014Q1

REPORT INFORMATION
  Report Type: Spontaneous
  Country: GB (occurrence: GB)
  Receive Date: 20140314
  Receipt Date: 20140314
  Transmission Date: 20141002
  Serious: Yes (Other)
  Sender: FDA-Public Use
  Company Number: GB-009507513-1403GBR006439

PATIENT
  Age: 56 Year
  Sex: Male

DRUGS (6)
  1. SITAGLIPTIN PHOSPHATE [Suspect]
     Indication: DIABETES MELLITUS
     Dosage: 100 MG, ONCE A DAY
     Route: 048
     Dates: start: 20140203, end: 20140205
  2. ATORVASTATIN [Concomitant]
     Dosage: UNK
  3. GLICLAZIDE [Concomitant]
     Dosage: UNK
  4. METFORMIN HYDROCHLORIDE [Concomitant]
     Dosage: UNK
  5. METRONIDAZOLE [Concomitant]
     Dosage: UNK
     Route: 048
  6. SIMVASTATIN [Concomitant]
     Dosage: UNK
     Route: 048

REACTIONS (1)
  - Epistaxis [Recovered/Resolved]
